FAERS Safety Report 4915949-0 (Version None)
Quarter: 2006Q1

REPORT INFORMATION
  Report Type: 
  Country: None (occurrence: None)
  Receive Date: 20060214
  Receipt Date: 20060124
  Transmission Date: 20060701
  Serious: Yes (Hospitalization, Disabling, Other)
  Sender: FDA-Public Use
  Company Number: US200601004265

PATIENT
  Age: 40 Year
  Sex: Male

DRUGS (8)
  1. HUMULIN 70/30 [Suspect]
     Indication: DIABETES MELLITUS
     Dosage: SEE IMAGE
     Route: 065
     Dates: start: 19910101
  2. AZATHIOPRINE [Concomitant]
  3. PREDNISOLONE [Concomitant]
  4. LASIX (FUROSEMIDE, FUROSEMIDE SODIUM) [Concomitant]
  5. COZAAR [Concomitant]
  6. AMITRIPTYLINE HYDROCHLORIDE [Concomitant]
  7. DOXAZOSIN (DOXAZOSIN) [Concomitant]
  8. FINASTERIDE [Concomitant]

REACTIONS (5)
  - BENIGN PROSTATIC HYPERPLASIA [None]
  - FOOT AMPUTATION [None]
  - HAND AMPUTATION [None]
  - PHANTOM PAIN [None]
  - PHARMACEUTICAL PRODUCT COMPLAINT [None]
